FAERS Safety Report 15302472 (Version 1)
Quarter: 2018Q3

REPORT INFORMATION
  Report Type: Other
  Country: US (occurrence: US)
  Receive Date: 20180821
  Receipt Date: 20180821
  Transmission Date: 20181010
  Serious: Yes (Life-Threatening, Hospitalization)
  Sender: FDA-Public Use
  Company Number: US-BEIERSDORF, INC-2054018

PATIENT
  Age: 56 Year
  Sex: Female

DRUGS (1)
  1. EUCERIN ECZEMA RELIEF FLARE UP TREATMENT [Suspect]
     Active Substance: OATMEAL
     Route: 061
     Dates: start: 20171201, end: 20171201

REACTIONS (1)
  - Hypersensitivity [Recovered/Resolved with Sequelae]

NARRATIVE: CASE EVENT DATE: 20171201
